FAERS Safety Report 5952708-4 (Version None)
Quarter: 2008Q4

REPORT INFORMATION
  Report Type: 
  Country: None (occurrence: None)
  Receive Date: 20081114
  Receipt Date: 20081111
  Transmission Date: 20090506
  Serious: Yes (Hospitalization)
  Sender: FDA-Public Use
  Company Number: US-B.I. PHARMACEUTICALS,INC./RIDGEFIELD-2008-BP-17074BP

PATIENT
  Sex: Female

DRUGS (5)
  1. ATROVENT [Suspect]
     Indication: CHRONIC OBSTRUCTIVE PULMONARY DISEASE
     Dates: start: 20070813
  2. SPIRIVA [Suspect]
     Indication: PNEUMONIA
     Dates: start: 20080101
  3. XOPENEX [Suspect]
     Indication: CHRONIC OBSTRUCTIVE PULMONARY DISEASE
     Route: 055
     Dates: start: 20070813
  4. XOPENEX [Suspect]
     Route: 055
     Dates: start: 20080101, end: 20080501
  5. XOPENEX [Suspect]
     Route: 055
     Dates: start: 20080701

REACTIONS (6)
  - AMNESIA [None]
  - CHRONIC OBSTRUCTIVE PULMONARY DISEASE [None]
  - EXPIRED DRUG ADMINISTERED [None]
  - LUNG NEOPLASM [None]
  - NERVOUSNESS [None]
  - PNEUMONIA [None]
